FAERS Safety Report 6444355-5 (Version None)
Quarter: 2009Q4

REPORT INFORMATION
  Report Type: 
  Country: None (occurrence: None)
  Receive Date: 20091117
  Receipt Date: 20091117
  Transmission Date: 20100525
  Serious: Yes (Other)
  Sender: FDA-Public Use
  Company Number: None

PATIENT
  Age: 54 Year
  Sex: Female
  Weight: 65.7716 kg

DRUGS (1)
  1. LEVOTHYROXINE SODIUM [Suspect]
     Indication: HYPOTHYROIDISM
     Dosage: 1 TABLET DAILY PO
     Route: 048
     Dates: start: 20090810, end: 20091017

REACTIONS (7)
  - CHAPPED LIPS [None]
  - CHEILITIS [None]
  - DRY MOUTH [None]
  - DYSGEUSIA [None]
  - FEELING ABNORMAL [None]
  - HEART RATE INCREASED [None]
  - HYPOAESTHESIA ORAL [None]
